FAERS Safety Report 5498273-X (Version None)
Quarter: 2007Q4

REPORT INFORMATION
  Report Type: 
  Country: None (occurrence: None)
  Receive Date: 20071025
  Receipt Date: 20070507
  Transmission Date: 20080405
  Serious: No
  Sender: FDA-Public Use
  Company Number: A0648533A

PATIENT
  Age: 47 Year
  Sex: Female
  Weight: 56.8 kg

DRUGS (7)
  1. ADVAIR DISKUS 100/50 [Suspect]
     Indication: ASTHMA
     Route: 055
  2. NASONEX [Concomitant]
  3. ALBUTEROL [Concomitant]
  4. CLARITIN [Concomitant]
     Indication: MULTIPLE ALLERGIES
  5. SINGULAIR [Concomitant]
     Indication: MULTIPLE ALLERGIES
  6. YASMIN [Concomitant]
  7. CLINDAMYCIN HCL [Concomitant]
     Indication: MITRAL VALVE PROLAPSE

REACTIONS (2)
  - DENTAL CARIES [None]
  - TOOTH DISORDER [None]
